FAERS Safety Report 7323169-8 (Version None)
Quarter: 2011Q1

REPORT INFORMATION
  Report Type: 
  Country: None (occurrence: None)
  Receive Date: 20110217
  Receipt Date: 20110204
  Transmission Date: 20110831
  Serious: Yes (Death)
  Sender: FDA-Public Use
  Company Number: 013972

PATIENT
  Age: 63 Year
  Sex: Female

DRUGS (13)
  1. VITAMEDIN CAPSULE (BENFOTIAMINE, CYANOCOBALAMIN, PYRIDOXINE HYDROCHLOR [Concomitant]
  2. LAC B (LACTOBACILLUS BIFIDUS, LYOPHILIZED) [Concomitant]
  3. GASTROM (ECABET MONOSODIUM) [Concomitant]
  4. VALSARTAN [Concomitant]
  5. FLUITRAN (TRICHLORMETHIAZIDE) [Concomitant]
  6. ALFAROL (ALFACALCIDOL) [Concomitant]
  7. FOLIC ACID [Concomitant]
  8. MACUGEN [Suspect]
     Indication: MACULAR DEGENERATION
     Dosage: 0.3 MG, INTRAOCULAR
     Route: 031
     Dates: start: 20081114, end: 20090612
  9. MACUGEN [Suspect]
     Indication: CHOROIDAL NEOVASCULARISATION
     Dosage: 0.3 MG, INTRAOCULAR
     Route: 031
     Dates: start: 20081114, end: 20090612
  10. TAKEPRON (LANSOPRAZOLE) [Concomitant]
  11. WARFARIN (WARFARIN) [Concomitant]
  12. LASIX [Concomitant]
  13. CHOCOLA A (ERGOCALCIFEROL, RETINOL) [Concomitant]

REACTIONS (1)
  - DEATH [None]
